FAERS Safety Report 21468528 (Version 11)
Quarter: 2024Q3

REPORT INFORMATION
  Report Type: Report from Study
  Country: US (occurrence: US)
  Receive Date: 20221017
  Receipt Date: 20240704
  Transmission Date: 20241017
  Serious: Yes (Hospitalization, Other)
  Sender: CSL BEHRING
  Company Number: US-BEH-2022148730

PATIENT
  Age: 29 Year
  Sex: Female
  Weight: 99.773 kg

DRUGS (18)
  1. HAEGARDA [Suspect]
     Active Substance: HUMAN C1-ESTERASE INHIBITOR
     Indication: Hereditary angioedema
     Dosage: UNK UNK, BIW
     Route: 058
     Dates: start: 20220811
  2. HAEGARDA [Suspect]
     Active Substance: HUMAN C1-ESTERASE INHIBITOR
     Indication: Prophylaxis
     Dosage: UNK UNK, BIW
     Route: 058
     Dates: start: 20220815
  3. HAEGARDA [Suspect]
     Active Substance: HUMAN C1-ESTERASE INHIBITOR
     Indication: Off label use
     Dosage: UNK, BIW
     Route: 058
     Dates: start: 20220811
  4. HAEGARDA [Suspect]
     Active Substance: HUMAN C1-ESTERASE INHIBITOR
     Indication: Hereditary angioedema
     Dosage: 6000 INTERNATIONAL UNIT, BIW
     Route: 058
     Dates: start: 20220811
  5. HAEGARDA [Suspect]
     Active Substance: HUMAN C1-ESTERASE INHIBITOR
     Dosage: UNK
     Route: 058
     Dates: start: 202303
  6. HAEGARDA [Suspect]
     Active Substance: HUMAN C1-ESTERASE INHIBITOR
     Dosage: UNK
     Route: 058
     Dates: start: 20220811
  7. HAEGARDA [Suspect]
     Active Substance: HUMAN C1-ESTERASE INHIBITOR
     Dosage: 6000 INTERNATIONAL UNIT
     Route: 058
     Dates: start: 20220811, end: 20230612
  8. HAEGARDA [Suspect]
     Active Substance: HUMAN C1-ESTERASE INHIBITOR
     Dosage: 8000 INTERNATIONAL UNIT/ TWICE A WEEK
     Route: 058
     Dates: start: 20240624, end: 20240624
  9. HAEGARDA [Suspect]
     Active Substance: HUMAN C1-ESTERASE INHIBITOR
     Dosage: 8000 INTERNATIONAL UNIT/ TWICE A WEEK
     Route: 058
  10. BERINERT [Suspect]
     Active Substance: HUMAN C1-ESTERASE INHIBITOR
     Indication: Hereditary angioedema
     Dosage: 6000 INTERNATIONAL UNIT/KILOGRAM, BIW
     Route: 058
  11. BERINERT [Suspect]
     Active Substance: HUMAN C1-ESTERASE INHIBITOR
     Indication: Prophylaxis
     Dosage: 6000 INTERNATIONAL UNIT, BIW
     Route: 058
  12. BERINERT [Suspect]
     Active Substance: HUMAN C1-ESTERASE INHIBITOR
     Dosage: 6000 INTERNATIONAL UNIT/KILOGRAM, PRN
     Route: 058
  13. DANAZOL [Concomitant]
     Active Substance: DANAZOL
     Dosage: UNK
     Dates: start: 2023
  14. FAMOTIDINE [Concomitant]
     Active Substance: FAMOTIDINE
     Dosage: 20 MILLIGRAM
  15. ICATIBANT [Concomitant]
     Active Substance: ICATIBANT ACETATE
  16. LEVOTHYROXINE [Concomitant]
     Active Substance: LEVOTHYROXINE\LEVOTHYROXINE SODIUM
  17. SERTRALINE [Concomitant]
     Active Substance: SERTRALINE HYDROCHLORIDE
  18. FIRAZYR [Concomitant]
     Active Substance: ICATIBANT ACETATE

REACTIONS (25)
  - Hospitalisation [Unknown]
  - Infusion site discolouration [Recovered/Resolved]
  - Infusion site pain [Recovered/Resolved]
  - Hereditary angioedema [Recovered/Resolved]
  - Fatigue [Not Recovered/Not Resolved]
  - Arthralgia [Not Recovered/Not Resolved]
  - Hereditary angioedema [Unknown]
  - Hereditary angioedema [Recovered/Resolved]
  - Insurance issue [Unknown]
  - Product dose omission issue [Unknown]
  - Hereditary angioedema [Not Recovered/Not Resolved]
  - Insurance issue [Not Recovered/Not Resolved]
  - Hereditary angioedema [Recovered/Resolved]
  - Product supply issue [Recovered/Resolved]
  - Hereditary angioedema [Recovered/Resolved]
  - Insurance issue [Recovered/Resolved]
  - Therapy interrupted [Recovered/Resolved]
  - Hereditary angioedema [Unknown]
  - Fall [Unknown]
  - Joint injury [Unknown]
  - Hereditary angioedema [Unknown]
  - Drug intolerance [Unknown]
  - Therapy cessation [Unknown]
  - Therapy cessation [Recovering/Resolving]
  - Product dose omission issue [Unknown]

NARRATIVE: CASE EVENT DATE: 20220811
